FAERS Safety Report 17102788 (Version 1)
Quarter: 2019Q4

REPORT INFORMATION
  Report Type: Spontaneous
  Country: JP (occurrence: JP)
  Receive Date: 20191203
  Receipt Date: 20191203
  Transmission Date: 20200122
  Serious: Yes (Other)
  Sender: FDA-Public Use
  Company Number: JP-ADVANZ PHARMA -201911002505

PATIENT

DRUGS (3)
  1. PILOCARPINE. [Suspect]
     Active Substance: PILOCARPINE
     Indication: DRY MOUTH
     Dosage: UNK
     Route: 048
     Dates: start: 2018, end: 2018
  2. PILOCARPINE. [Suspect]
     Active Substance: PILOCARPINE
     Dosage: 5 MG, QD
     Route: 048
     Dates: start: 201911, end: 201911
  3. PILOCARPINE. [Suspect]
     Active Substance: PILOCARPINE
     Dosage: 5 MG, QD
     Route: 048
     Dates: start: 201911, end: 201911

REACTIONS (7)
  - Dysuria [Unknown]
  - Urinary retention [Unknown]
  - Intentional product misuse [Unknown]
  - Genital pain [Recovering/Resolving]
  - Pollakiuria [Unknown]
  - Frequent bowel movements [Unknown]
  - Hyperhidrosis [Unknown]

NARRATIVE: CASE EVENT DATE: 201911
